FAERS Safety Report 7758895-X (Version None)
Quarter: 2011Q3

REPORT INFORMATION
  Report Type: 
  Country: None (occurrence: None)
  Receive Date: 20110916
  Receipt Date: 20110916
  Transmission Date: 20111222
  Serious: Yes (Hospitalization)
  Sender: FDA-Public Use
  Company Number: None

PATIENT
  Age: 69 Year
  Sex: Female
  Weight: 63 kg

DRUGS (4)
  1. DECITABINE [Suspect]
     Indication: MYELODYSPLASTIC SYNDROME
     Dosage: 0.2MG/KG 2X WEEK LAST DOSE 9/6,HELD SINCE
     Dates: end: 20110906
  2. TYLENOL-500 [Concomitant]
  3. CIPROFLOXACIN [Concomitant]
  4. AMBIEN [Concomitant]

REACTIONS (4)
  - WHITE BLOOD CELL COUNT DECREASED [None]
  - TOOTHACHE [None]
  - HAEMOGLOBIN DECREASED [None]
  - TOOTH INFECTION [None]
